FAERS Safety Report 4330293-0 (Version None)
Quarter: 2004Q2

REPORT INFORMATION
  Report Type: 
  Country: None (occurrence: None)
  Receive Date: 20040401
  Receipt Date: 20040401
  Transmission Date: 20050107
  Serious: Yes (Hospitalization)
  Sender: FDA-Public Use
  Company Number: None

PATIENT

DRUGS (2)
  1. ARICEPT [Suspect]
     Dosage: 5MG QD ORAL
     Route: 048
  2. AVAPRO [Suspect]
     Dosage: 150MG BID ORAL
     Route: 048

REACTIONS (5)
  - BRADYCARDIA [None]
  - CONVULSION [None]
  - DEPRESSED LEVEL OF CONSCIOUSNESS [None]
  - HYPERHIDROSIS [None]
  - TREMOR [None]
